FAERS Safety Report 18435004 (Version 1)
Quarter: 2020Q4

REPORT INFORMATION
  Report Type: Spontaneous
  Country: US (occurrence: US)
  Receive Date: 20201027
  Receipt Date: 20201027
  Transmission Date: 20210114
  Serious: Yes (Other)
  Sender: FDA-Public Use
  Company Number: US-JAZZ-2020-US-009957

PATIENT
  Age: 19 Year
  Sex: Female

DRUGS (1)
  1. XYREM [Suspect]
     Active Substance: SODIUM OXYBATE
     Indication: PRODUCT USED FOR UNKNOWN INDICATION
     Dosage: 13.5 GRAM,FREQUENCY UNKNOWN
     Route: 048

REACTIONS (2)
  - Suicide attempt [Unknown]
  - Overdose [Unknown]
